FAERS Safety Report 8433674-9 (Version None)
Quarter: 2012Q2

REPORT INFORMATION
  Report Type: 
  Country: None (occurrence: None)
  Receive Date: 20120613
  Receipt Date: 20120531
  Transmission Date: 20120825
  Serious: Yes (Other)
  Sender: FDA-Public Use
  Company Number: GB-TEVA-340747ISR

PATIENT
  Age: 46 Year
  Sex: Female
  Weight: 69 kg

DRUGS (8)
  1. AMLODIPINE BESYLATE [Concomitant]
     Dates: start: 20120224
  2. ALBUTEROL [Concomitant]
     Dates: start: 20120123, end: 20120220
  3. ACETAMINOPHEN AND CODEINE PHOSPHATE [Concomitant]
     Dates: start: 20120420, end: 20120518
  4. QVAR 40 [Concomitant]
     Dates: start: 20120123
  5. PREDNISOLONE [Concomitant]
     Dates: start: 20120518
  6. ADCAL [Concomitant]
     Dates: start: 20120123
  7. ISTIN [Concomitant]
     Dates: start: 20120518
  8. AMLODIPINE [Suspect]
     Route: 048
     Dates: start: 20120516

REACTIONS (1)
  - ASTHMA [None]
